FAERS Safety Report 4653420-4 (Version None)
Quarter: 2005Q2

REPORT INFORMATION
  Report Type: 
  Country: None (occurrence: None)
  Receive Date: 20050505
  Receipt Date: 20050420
  Transmission Date: 20051028
  Serious: Yes (Hospitalization, Other)
  Sender: FDA-Public Use
  Company Number: US-GLAXOSMITHKLINE-A0555139A

PATIENT
  Age: 40 Year
  Sex: Male
  Weight: 86.4 kg

DRUGS (1)
  1. BC [Suspect]
     Indication: HEADACHE
     Route: 048

REACTIONS (6)
  - ACOUSTIC NEUROMA [None]
  - CEREBROSPINAL FLUID LEAKAGE [None]
  - DIZZINESS [None]
  - FACIAL NERVE DISORDER [None]
  - HEADACHE [None]
  - HYPOACUSIS [None]
